FAERS Safety Report 12745900 (Version 1)
Quarter: 2016Q3

REPORT INFORMATION
  Report Type: Spontaneous
  Country: GB (occurrence: GB)
  Receive Date: 20160915
  Receipt Date: 20160915
  Transmission Date: 20161109
  Serious: Yes (Other)
  Sender: FDA-Public Use
  Company Number: GB-BIOGEN-2016BI00208134

PATIENT
  Age: 41 Year
  Sex: Female
  Weight: 75 kg

DRUGS (2)
  1. TECFIDERA [Suspect]
     Active Substance: DIMETHYL FUMARATE
     Dosage: MAINTENANCE DOSE
     Route: 048
     Dates: end: 20160301
  2. TECFIDERA [Suspect]
     Active Substance: DIMETHYL FUMARATE
     Indication: MULTIPLE SCLEROSIS
     Dosage: INITAL DOSE
     Route: 048
     Dates: start: 20160128

REACTIONS (1)
  - Supraventricular tachycardia [Unknown]

NARRATIVE: CASE EVENT DATE: 20160301
